FAERS Safety Report 23960920 (Version 1)
Quarter: 2024Q2

REPORT INFORMATION
  Report Type: Spontaneous
  Country: US (occurrence: None)
  Receive Date: 20240609
  Receipt Date: 20240609
  Transmission Date: 20240716
  Serious: Yes (Hospitalization)
  Sender: FDA-Public Use
  Company Number: None

PATIENT
  Age: 48 Year
  Sex: Female
  Weight: 72.9 kg

DRUGS (1)
  1. ZONISAMIDE [Suspect]
     Active Substance: ZONISAMIDE
     Indication: Epilepsy

REACTIONS (4)
  - Weight increased [None]
  - Chronic kidney disease [None]
  - Faecaloma [None]
  - Megacolon [None]

NARRATIVE: CASE EVENT DATE: 20240227
